FAERS Safety Report 9676958 (Version 2)
Quarter: 2013Q4

REPORT INFORMATION
  Report Type: Report from Study
  Country: US (occurrence: US)
  Receive Date: 20131108
  Receipt Date: 20131111
  Transmission Date: 20140711
  Serious: Yes (Life-Threatening)
  Sender: FDA-Public Use
  Company Number: US-ROCHE-1300656

PATIENT
  Age: 22 Year
  Sex: Female

DRUGS (11)
  1. XOLAIR [Suspect]
     Indication: ASTHMA
     Dosage: VIAL
     Route: 058
     Dates: start: 2011, end: 201308
  2. ALBUTEROL [Concomitant]
     Indication: COUGH
     Dosage: 2.5MG/3ML, 1 WHILE NEBULIZED EVERY 4-6H AS NEEDED
     Route: 065
  3. ALBUTEROL [Concomitant]
     Indication: WHEEZING
  4. CETIRIZINE HCL [Concomitant]
     Dosage: 1 QD
     Route: 065
  5. METFORMIN [Concomitant]
     Dosage: QD
     Route: 065
  6. PREDNISONE [Concomitant]
     Dosage: QD
     Route: 065
  7. PRILOSEC [Concomitant]
     Dosage: 1 QD
     Route: 065
  8. SINGULAIR [Concomitant]
     Dosage: 1 QD
     Route: 065
  9. SPIRIVA [Concomitant]
     Route: 065
  10. SYMBICORT [Concomitant]
     Dosage: 160-4.5MCG, 2 PUFFS TWICE DAILY WITH SPACER
     Route: 065
  11. VENTOLIN HFA [Concomitant]
     Dosage: INHALE 2 PUFFS EVERY 4-6H AS NEEDED
     Route: 065

REACTIONS (5)
  - Asthma [Unknown]
  - Chlamydia test positive [Unknown]
  - Weight increased [Unknown]
  - Seasonal allergy [Unknown]
  - Mycoplasma test positive [Unknown]
